FAERS Safety Report 7942954-2 (Version None)
Quarter: 2011Q4

REPORT INFORMATION
  Report Type: 
  Country: None (occurrence: None)
  Receive Date: 20111128
  Receipt Date: 20111115
  Transmission Date: 20120403
  Serious: Yes (Hospitalization)
  Sender: FDA-Public Use
  Company Number: DE-ALEXION-A201101001

PATIENT
  Sex: Female
  Weight: 53 kg

DRUGS (12)
  1. AMLODIPINE [Concomitant]
     Indication: HYPERTENSION
     Dosage: 5 MG, UNK
     Route: 048
     Dates: start: 20110612
  2. MOXONIDIN [Concomitant]
     Indication: HYPERTENSION
     Dosage: 0.2 MG, UNK
     Route: 048
     Dates: start: 20110621
  3. MIDAZOLAM [Concomitant]
     Indication: AGITATION
     Dosage: 48 MG/HR
     Route: 042
     Dates: start: 20110621, end: 20110622
  4. CEFTAZIDIME [Concomitant]
     Indication: PSEUDOMONAS INFECTION
     Dosage: 500 MG/48 HR
     Route: 042
     Dates: start: 20110622
  5. LEVETIRACETAM [Concomitant]
     Indication: EPILEPSY
     Dosage: 2500 MG, UNK
     Route: 042
     Dates: start: 20110530
  6. INSULIN [Concomitant]
     Indication: BLOOD GLUCOSE ABNORMAL
     Dosage: UNK
     Route: 058
     Dates: start: 20110518
  7. CANDESARTAN CILEXETIL [Concomitant]
     Indication: HYPERTENSION
     Dosage: 16 MG, BID
     Route: 048
     Dates: start: 20110602
  8. SOLIRIS [Suspect]
     Indication: HAEMOLYTIC URAEMIC SYNDROME
     Dosage: 900 MG, QW
     Route: 042
     Dates: start: 20110618, end: 20110618
  9. CLARITHROMYCIN [Concomitant]
     Indication: PSEUDOMONAS INFECTION
     Dosage: UNK
     Route: 042
     Dates: start: 20110528, end: 20110627
  10. PANTOPRAZOLE [Concomitant]
     Indication: PROPHYLAXIS AGAINST GASTROINTESTINAL ULCER
     Dosage: 40 MG, UNK
     Route: 042
     Dates: start: 20110531
  11. METOPROLOL TARTRATE [Concomitant]
     Indication: HYPERTENSION
     Dosage: 95 MG, UNK
     Route: 048
     Dates: start: 20110607
  12. HEPARIN [Concomitant]
     Dosage: 6000 IU
     Route: 058

REACTIONS (1)
  - PSEUDOMONAL BACTERAEMIA [None]
